FAERS Safety Report 10148723 (Version 3)
Quarter: 2014Q2

REPORT INFORMATION
  Report Type: Spontaneous
  Country: ES (occurrence: ES)
  Receive Date: 20140501
  Receipt Date: 20140625
  Transmission Date: 20141212
  Serious: Yes (Other)
  Sender: FDA-Public Use
  Company Number: 2014SP002384

PATIENT
  Age: 65 Year
  Sex: Female

DRUGS (12)
  1. METHOTREXATE [Suspect]
     Indication: RHEUMATOID ARTHRITIS
  2. METHOTREXATE [Suspect]
     Indication: RHEUMATOID ARTHRITIS
     Route: 048
  3. PREDNISOLONE [Suspect]
     Indication: PRODUCT USED FOR UNKNOWN INDICATION
  4. ETANERCEPT [Suspect]
     Indication: RHEUMATOID ARTHRITIS
     Route: 058
     Dates: start: 20131209
  5. ETANERCEPT [Suspect]
     Indication: RHEUMATOID ARTHRITIS
     Dates: start: 20140428
  6. ACFOL [Concomitant]
  7. DEZACOR [Concomitant]
  8. OMEPRAZOLE [Concomitant]
  9. PARACETAMOL [Concomitant]
  10. TRAMADOL [Concomitant]
  11. CEMIDON [Concomitant]
  12. AIRTAL [Concomitant]

REACTIONS (24)
  - Angina pectoris [Recovered/Resolved]
  - Choking sensation [Recovered/Resolved]
  - Hypoaesthesia [Recovered/Resolved]
  - Drug effect incomplete [Not Recovered/Not Resolved]
  - Local swelling [Not Recovered/Not Resolved]
  - Pain in extremity [Unknown]
  - Musculoskeletal stiffness [Unknown]
  - Fall [Unknown]
  - Decreased immune responsiveness [Unknown]
  - Asthenia [Unknown]
  - Tongue pruritus [Recovered/Resolved]
  - Nausea [Recovered/Resolved]
  - Dizziness [Recovered/Resolved]
  - Diaphragmatic disorder [Recovered/Resolved]
  - Renal disorder [Unknown]
  - Pain [Unknown]
  - Malaise [Unknown]
  - Vomiting [Unknown]
  - Depressed mood [Unknown]
  - Dry mouth [Unknown]
  - Increased appetite [Unknown]
  - Ear pruritus [Unknown]
  - Feeling abnormal [Unknown]
  - Diarrhoea [Unknown]
